FAERS Safety Report 6806326-6 (Version None)
Quarter: 2010Q2

REPORT INFORMATION
  Report Type: 
  Country: None (occurrence: None)
  Receive Date: 20100629
  Receipt Date: 20080318
  Transmission Date: 20101027
  Serious: No
  Sender: FDA-Public Use
  Company Number: US-PFIZER INC-2008010161

PATIENT
  Sex: Male
  Weight: 83.91 kg

DRUGS (1)
  1. TIKOSYN [Suspect]
     Indication: ATRIAL FIBRILLATION
     Dates: start: 20070708

REACTIONS (2)
  - DRUG DOSE OMISSION [None]
  - NO ADVERSE EVENT [None]
